FAERS Safety Report 6172953-5 (Version None)
Quarter: 2009Q2

REPORT INFORMATION
  Report Type: 
  Country: None (occurrence: None)
  Receive Date: 20090430
  Receipt Date: 20090421
  Transmission Date: 20091009
  Serious: Yes (Hospitalization)
  Sender: FDA-Public Use
  Company Number: JP-TYCO HEALTHCARE/MALLINCKRODT-T200900913

PATIENT
  Age: 48 Year
  Sex: Female

DRUGS (1)
  1. OPTIRAY 300 [Suspect]
     Indication: COMPUTERISED TOMOGRAM
     Dosage: 63 ML, SINGLE
     Route: 042
     Dates: start: 20090416, end: 20090416

REACTIONS (4)
  - ERYTHEMA [None]
  - FACE OEDEMA [None]
  - MALAISE [None]
  - URTICARIA [None]
